FAERS Safety Report 11627650 (Version 1)
Quarter: 2015Q4

REPORT INFORMATION
  Report Type: Spontaneous
  Country: FR (occurrence: FR)
  Receive Date: 20151014
  Receipt Date: 20151014
  Transmission Date: 20160304
  Serious: Yes (Other)
  Sender: FDA-Public Use
  Company Number: FR-009507513-1504FRA020873

PATIENT
  Sex: Male

DRUGS (2)
  1. SINEMET L.P. [Suspect]
     Active Substance: CARBIDOPA\LEVODOPA
     Indication: PARKINSON^S DISEASE
     Dosage: 50/200MG, QD
     Route: 048
  2. ZOLOFT [Concomitant]
     Active Substance: SERTRALINE HYDROCHLORIDE
     Dosage: 1 DF, QD (STRENGTH: 25 (UNIT UNKNOWN))
     Route: 048
     Dates: start: 201503

REACTIONS (2)
  - Aggression [Unknown]
  - Depression [Unknown]

NARRATIVE: CASE EVENT DATE: 201503
